FAERS Safety Report 5475558-4 (Version None)
Quarter: 2007Q4

REPORT INFORMATION
  Report Type: 
  Country: None (occurrence: None)
  Receive Date: 20071003
  Receipt Date: 20061205
  Transmission Date: 20080405
  Serious: No
  Sender: FDA-Public Use
  Company Number: US-KINGPHARMUSA00001-K200601548

PATIENT

DRUGS (8)
  1. SONATA [Suspect]
     Dates: start: 20060922, end: 20061010
  2. AMBIEN CR [Concomitant]
     Dosage: 12.5 MG, QHS
     Dates: end: 20060922
  3. ADDERALL 10 [Concomitant]
     Dosage: 30 MG, QD
     Dates: end: 20060922
  4. LUNESTA [Concomitant]
     Indication: INSOMNIA
     Dosage: 3 MG, QHS
     Route: 048
     Dates: start: 20061011, end: 20061017
  5. PAXIL [Concomitant]
     Indication: DEPRESSION
     Dosage: 25 MG, QD
     Route: 048
     Dates: end: 20061010
  6. PAXIL [Concomitant]
     Dosage: 50 MG, QD
     Route: 048
     Dates: start: 20061011
  7. NEXIUM [Concomitant]
     Dosage: 40 MG, QD
  8. LORAZEPAM [Concomitant]
     Dosage: .5 MG, TID

REACTIONS (1)
  - DRUG INEFFECTIVE [None]
